FAERS Safety Report 5361777-4 (Version None)
Quarter: 2007Q2

REPORT INFORMATION
  Report Type: 
  Country: None (occurrence: None)
  Receive Date: 20070619
  Receipt Date: 20070612
  Transmission Date: 20071010
  Serious: Yes (Hospitalization)
  Sender: FDA-Public Use
  Company Number: AU-JNJFOC-20070603072

PATIENT
  Age: 54 Year
  Sex: Male

DRUGS (2)
  1. RISPERDAL [Suspect]
     Indication: NEUROSIS
     Route: 048
  2. ZYPREXA [Concomitant]
     Indication: PSYCHOPATHIC PERSONALITY

REACTIONS (2)
  - BENIGN PROSTATIC HYPERPLASIA [None]
  - URINARY RETENTION [None]
